FAERS Safety Report 10049797 (Version 1)
Quarter: 2014Q2

REPORT INFORMATION
  Report Type: Spontaneous
  Country: US (occurrence: US)
  Receive Date: 20140401
  Receipt Date: 20140401
  Transmission Date: 20141212
  Serious: No
  Sender: FDA-Public Use
  Company Number: US-TEVA-472232USA

PATIENT
  Age: 33 Year
  Sex: Female
  Weight: 60.38 kg

DRUGS (4)
  1. PARAGARD 380A [Suspect]
     Indication: CONTRACEPTION
     Route: 015
     Dates: start: 20131009, end: 20140309
  2. PARAGARD 380A [Suspect]
     Route: 015
     Dates: start: 20140309
  3. IRON [Concomitant]
     Indication: ANAEMIA
  4. PRENATAL VITAMINS [Concomitant]
     Indication: BREAST FEEDING

REACTIONS (3)
  - Dysmenorrhoea [Recovered/Resolved]
  - Vaginal haemorrhage [Recovered/Resolved]
  - Device expulsion [Recovered/Resolved]
